FAERS Safety Report 10442330 (Version 2)
Quarter: 2014Q3

REPORT INFORMATION
  Report Type: Spontaneous
  Country: IT (occurrence: IT)
  Receive Date: 20140909
  Receipt Date: 20140915
  Transmission Date: 20150326
  Serious: Yes (Hospitalization)
  Sender: FDA-Public Use
  Company Number: IT-TEVA-506229ISR

PATIENT
  Age: 57 Year
  Sex: Female

DRUGS (5)
  1. EN - 1 MG/ML GOCCE ORALI SOLUZIONE [Concomitant]
     Indication: PRODUCT USED FOR UNKNOWN INDICATION
     Dosage: ORAL DROPS, SOLUTION
     Route: 048
     Dates: start: 20140808, end: 20140812
  2. KCL RETARD - 600 MG COMPRESSE A RILASCIO PROLUNGATO [Concomitant]
     Indication: PRODUCT USED FOR UNKNOWN INDICATION
     Route: 048
     Dates: start: 20140811, end: 20140812
  3. MIRTAZAPINE. [Concomitant]
     Active Substance: MIRTAZAPINE
     Indication: PRODUCT USED FOR UNKNOWN INDICATION
     Route: 048
     Dates: start: 20140808, end: 20140811
  4. PANTORC - COMPRESSE GASTRORESISTENTI 40 MG [Concomitant]
     Indication: PRODUCT USED FOR UNKNOWN INDICATION
     Dosage: GASTRO-RESISTANT TABLET
     Route: 048
     Dates: start: 20140811, end: 20140812
  5. FILGRASTIM [Suspect]
     Active Substance: FILGRASTIM
     Indication: BLOOD STEM CELL HARVEST
     Dosage: 15 UG/KG AS NECESSARY
     Route: 058
     Dates: start: 20140808, end: 20140811

REACTIONS (2)
  - Acute myocardial infarction [Recovering/Resolving]
  - Pulmonary eosinophilia [Recovering/Resolving]

NARRATIVE: CASE EVENT DATE: 20140812
